FAERS Safety Report 6646570-4 (Version None)
Quarter: 2010Q1

REPORT INFORMATION
  Report Type: 
  Country: None (occurrence: None)
  Receive Date: 20100323
  Receipt Date: 20100317
  Transmission Date: 20100710
  Serious: Yes (Death)
  Sender: FDA-Public Use
  Company Number: TR-ELI_LILLY_AND_COMPANY-TR201003004788

PATIENT
  Sex: Male

DRUGS (3)
  1. HUMALOG MIX 75/25 [Suspect]
     Indication: DIABETES MELLITUS
     Dosage: UNK, 2/D
     Route: 058
     Dates: start: 20090901
  2. HYZAAR [Concomitant]
     Indication: HYPERTENSION
     Dosage: UNK, EACH MORNING
     Route: 048
  3. ANALGESICS [Concomitant]
     Dosage: UNK, UNKNOWN

REACTIONS (1)
  - HEPATIC NEOPLASM MALIGNANT [None]
